FAERS Safety Report 15291403 (Version 1)
Quarter: 2018Q3

REPORT INFORMATION
  Report Type: Spontaneous
  Country: US (occurrence: US)
  Receive Date: 20180805
  Receipt Date: 20180805
  Transmission Date: 20181010
  Serious: Yes (Other)
  Sender: FDA-Public Use
  Company Number: None

PATIENT
  Age: 62 Year
  Sex: Male
  Weight: 90 kg

DRUGS (18)
  1. EZETIMIBE. [Concomitant]
     Active Substance: EZETIMIBE
  2. B50 [Concomitant]
  3. VITAMIN D3 [Concomitant]
     Active Substance: CHOLECALCIFEROL
  4. VITAMIN C [Concomitant]
     Active Substance: ASCORBIC ACID
  5. NITROSTAT [Concomitant]
     Active Substance: NITROGLYCERIN
  6. BENAZEPRIL [Concomitant]
     Active Substance: BENAZEPRIL HYDROCHLORIDE
  7. FLONASE PROPIONATE [Concomitant]
  8. PROPECIA [Concomitant]
     Active Substance: FINASTERIDE
  9. XARELTO [Suspect]
     Active Substance: RIVAROXABAN
     Indication: ATRIAL FIBRILLATION
     Dosage: ?          QUANTITY:1 TABLET(S);?
     Route: 048
     Dates: start: 20151210, end: 20171130
  10. ELIQUIS [Suspect]
     Active Substance: APIXABAN
     Indication: ATRIAL FIBRILLATION
     Dosage: ?          QUANTITY:1 TABLET(S);?
     Route: 048
     Dates: start: 20151118, end: 20151222
  11. AMIODARONE [Concomitant]
     Active Substance: AMIODARONE
  12. NIZORAL [Concomitant]
     Active Substance: KETOCONAZOLE
  13. VITAMIN B12 [Concomitant]
     Active Substance: CYANOCOBALAMIN
  14. NIAGEN [Concomitant]
  15. REPATHA [Concomitant]
     Active Substance: EVOLOCUMAB
  16. ATENOLOL. [Concomitant]
     Active Substance: ATENOLOL
  17. ISOSORB MONO ER [Concomitant]
     Active Substance: ISOSORBIDE MONONITRATE
  18. POTASSIUM GLUCONATE [Concomitant]
     Active Substance: POTASSIUM GLUCONATE

REACTIONS (1)
  - Blindness [None]

NARRATIVE: CASE EVENT DATE: 20151222
